FAERS Safety Report 7705990-7 (Version None)
Quarter: 2011Q3

REPORT INFORMATION
  Report Type: 
  Country: None (occurrence: None)
  Receive Date: 20110824
  Receipt Date: 20110810
  Transmission Date: 20111222
  Serious: Yes (Life-Threatening, Hospitalization, Other)
  Sender: FDA-Public Use
  Company Number: PHHY2011JP70949

PATIENT
  Age: 73 Year
  Sex: Male

DRUGS (4)
  1. RASILEZ [Suspect]
     Indication: HYPERTENSION
     Dosage: 150 MG DAILY
     Route: 048
     Dates: start: 20110420
  2. CANDESARTAN CILEXETIL AND HYDROCHLOROTHIAZIDE [Suspect]
     Dosage: UNK UKN, UNK
     Route: 048
     Dates: start: 20100823
  3. CALBLOCK [Concomitant]
     Dosage: 16 MG, UNK
     Route: 048
     Dates: start: 20101021
  4. FAMOTIDINE [Concomitant]
     Dosage: 10 MG, DAILY AFTER BREAKFAST

REACTIONS (3)
  - DYSPNOEA [None]
  - HEAT ILLNESS [None]
  - FALL [None]
